FAERS Safety Report 6450371-X (Version None)
Quarter: 2009Q4

REPORT INFORMATION
  Report Type: 
  Country: None (occurrence: None)
  Receive Date: 20091123
  Receipt Date: 20091109
  Transmission Date: 20100525
  Serious: Yes (Death)
  Sender: FDA-Public Use
  Company Number: US-BRISTOL-MYERS SQUIBB COMPANY-14849210

PATIENT
  Age: 47 Year
  Sex: Female

DRUGS (4)
  1. ARIPIPRAZOLE [Suspect]
     Indication: SCHIZOPHRENIA
  2. QUETIAPINE [Suspect]
     Indication: SCHIZOPHRENIA
  3. ESCITALOPRAM [Suspect]
     Indication: SCHIZOPHRENIA
  4. TOPROL-XL [Concomitant]

REACTIONS (4)
  - BACTERAEMIA [None]
  - FAECALOMA [None]
  - RENAL FAILURE ACUTE [None]
  - URINARY BLADDER RUPTURE [None]
